FAERS Safety Report 7624600-0 (Version None)
Quarter: 2011Q3

REPORT INFORMATION
  Report Type: 
  Country: None (occurrence: None)
  Receive Date: 20110720
  Receipt Date: 20110711
  Transmission Date: 20111222
  Serious: Yes (Hospitalization, Other)
  Sender: FDA-Public Use
  Company Number: US-BAYER-2011-018449

PATIENT
  Age: 19 Year
  Sex: Female

DRUGS (8)
  1. LORTAB [Concomitant]
  2. YAZ [Suspect]
     Dosage: UNK
     Route: 048
     Dates: start: 20100530, end: 20100701
  3. DILAUDID [Concomitant]
     Indication: ANALGESIC THERAPY
  4. BACTRIM DS [Concomitant]
  5. PERCOCET [Concomitant]
     Indication: ANALGESIC THERAPY
  6. ALBUTEROL SULFATE AUTOHALER [Concomitant]
     Indication: DYSPNOEA
     Dosage: UNK
     Dates: start: 19950101
  7. IBUPROFEN [Concomitant]
  8. PHENAZOPYRIDINE HCL TAB [Concomitant]

REACTIONS (7)
  - MUSCLE SPASMS [None]
  - OEDEMA PERIPHERAL [None]
  - DEEP VEIN THROMBOSIS [None]
  - EMOTIONAL DISTRESS [None]
  - PAIN [None]
  - PULMONARY EMBOLISM [None]
  - DYSPNOEA [None]
